FAERS Safety Report 19053990 (Version 13)
Quarter: 2023Q2

REPORT INFORMATION
  Report Type: Spontaneous
  Country: JP (occurrence: JP)
  Receive Date: 20210324
  Receipt Date: 20230530
  Transmission Date: 20230722
  Serious: Yes (Hospitalization, Other)
  Sender: FDA-Public Use
  Company Number: JP-BRISTOL-MYERS SQUIBB COMPANY-BMS-2020-102433

PATIENT
  Age: 41 Year
  Sex: Female

DRUGS (10)
  1. YERVOY [Suspect]
     Active Substance: IPILIMUMAB
     Indication: Malignant melanoma
     Dosage: 3 MG/KG
     Route: 041
     Dates: start: 20201029, end: 20201203
  2. YERVOY [Suspect]
     Active Substance: IPILIMUMAB
  3. OPDIVO [Suspect]
     Active Substance: NIVOLUMAB
     Indication: Malignant melanoma
     Dosage: 80 MG
     Route: 041
     Dates: start: 20201029, end: 20201203
  4. DACARBAZINE [Suspect]
     Active Substance: DACARBAZINE
     Indication: Malignant melanoma
     Dosage: 1000 MG/M2
     Dates: start: 20210106
  5. DACARBAZINE [Suspect]
     Active Substance: DACARBAZINE
     Dosage: UNK
  6. DACARBAZINE [Suspect]
     Active Substance: DACARBAZINE
     Dosage: UNK
  7. DACARBAZINE [Suspect]
     Active Substance: DACARBAZINE
     Dosage: 1000 MILLIGRAM/SQ. METER
     Dates: start: 20210201
  8. LEVOTHYROXINE SODIUM [Suspect]
     Active Substance: LEVOTHYROXINE SODIUM
     Indication: Autoimmune thyroiditis
     Dosage: UNK-2020/11/18
  9. LEVOTHYROXINE SODIUM [Suspect]
     Active Substance: LEVOTHYROXINE SODIUM
     Dosage: UNK-2020/11/18
  10. LEVOTHYROXINE SODIUM [Suspect]
     Active Substance: LEVOTHYROXINE SODIUM
     Dosage: UNK
     Dates: end: 20201118

REACTIONS (7)
  - Adrenal insufficiency [Not Recovered/Not Resolved]
  - Immune-mediated thyroiditis [Unknown]
  - Immune-mediated hepatitis [Recovered/Resolved]
  - Hypopituitarism [Unknown]
  - Immune-mediated lung disease [Unknown]
  - Lipase increased [Recovering/Resolving]
  - Amylase increased [Recovering/Resolving]

NARRATIVE: CASE EVENT DATE: 20201118
